FAERS Safety Report 14134174 (Version 1)
Quarter: 2017Q4

REPORT INFORMATION
  Report Type: Spontaneous
  Country: US (occurrence: None)
  Receive Date: 20171027
  Receipt Date: 20171027
  Transmission Date: 20180321
  Serious: Yes (Hospitalization)
  Sender: FDA-Public Use
  Company Number: None

PATIENT
  Age: 73 Year
  Sex: Female

DRUGS (23)
  1. ANAGRELIDE. [Concomitant]
     Active Substance: ANAGRELIDE HYDROCHLORIDE
  2. HYDROCO/APAP [Concomitant]
     Active Substance: ACETAMINOPHEN\HYDROCODONE
  3. SPIRONOLACT [Concomitant]
     Active Substance: SPIRONOLACTONE
  4. VALSARTAN. [Concomitant]
     Active Substance: VALSARTAN
  5. ASPIRIN. [Concomitant]
     Active Substance: ASPIRIN
  6. METOPROL TAR [Concomitant]
  7. ELIQUIS [Concomitant]
     Active Substance: APIXABAN
  8. FERROUS SULF [Concomitant]
     Active Substance: FERROUS SULFATE
  9. FUROSEMIDE. [Concomitant]
     Active Substance: FUROSEMIDE
  10. MULTIVITAMIN [Concomitant]
     Active Substance: VITAMINS
  11. UPTRAVI [Concomitant]
     Active Substance: SELEXIPAG
  12. VALSARTAN AND HYDROCHLOROTHIAZIDE [Concomitant]
     Active Substance: HYDROCHLOROTHIAZIDE\VALSARTAN
  13. PREDNISONE. [Concomitant]
     Active Substance: PREDNISONE
  14. AMIODARONE [Concomitant]
     Active Substance: AMIODARONE
  15. DIOVAN [Concomitant]
     Active Substance: VALSARTAN
  16. POT CL [Concomitant]
  17. TRACLEER [Concomitant]
     Active Substance: BOSENTAN
  18. AMOXICILLIN. [Concomitant]
     Active Substance: AMOXICILLIN
  19. IRON [Concomitant]
     Active Substance: IRON
  20. MICARDIS [Concomitant]
     Active Substance: TELMISARTAN
  21. HYDROXYUREA. [Concomitant]
     Active Substance: HYDROXYUREA
  22. ADCIRCA [Suspect]
     Active Substance: TADALAFIL
     Indication: PULMONARY HYPERTENSION
     Route: 048
     Dates: start: 20110120
  23. THERAPEUTIC [Concomitant]
     Active Substance: COAL TAR

REACTIONS (1)
  - Atrial fibrillation [None]

NARRATIVE: CASE EVENT DATE: 201710
